FAERS Safety Report 4374106-X (Version None)
Quarter: 2004Q2

REPORT INFORMATION
  Report Type: 
  Country: None (occurrence: None)
  Receive Date: 20040604
  Receipt Date: 20040524
  Transmission Date: 20050107
  Serious: Yes (Hospitalization)
  Sender: FDA-Public Use
  Company Number: 2004UW07750

PATIENT
  Age: 58 Year
  Sex: Male
  Weight: 97.5234 kg

DRUGS (19)
  1. NEXIUM [Suspect]
     Indication: GASTROOESOPHAGEAL REFLUX DISEASE
     Dosage: 40 MG PO
     Route: 048
  2. ZOCOR [Suspect]
     Dosage: 20 MG DAILY
     Dates: start: 20010101, end: 20040305
  3. PRAVACHOL [Suspect]
     Dosage: 40 MG DAILY PO
     Route: 048
     Dates: start: 20040305, end: 20040409
  4. IDERAL-LA [Concomitant]
  5. ZOLOFT [Concomitant]
  6. DAPSONE [Concomitant]
  7. DIOVAN [Concomitant]
  8. KLONOPIN [Concomitant]
  9. ASPIRIN [Concomitant]
  10. XANAX [Concomitant]
  11. OXYCONTIN [Concomitant]
  12. IBUPROFEN [Concomitant]
  13. SUDAFED S.A. [Concomitant]
  14. CHLORTRIAMETON [Concomitant]
  15. AMBIEN [Concomitant]
  16. LEVAQUIN [Concomitant]
  17. GUAIFENESIN [Concomitant]
  18. RISPERDAL [Concomitant]
  19. CLONAZEPAM [Concomitant]

REACTIONS (14)
  - ASTHENIA [None]
  - BLOOD CREATINE PHOSPHOKINASE INCREASED [None]
  - CEREBROVASCULAR ACCIDENT [None]
  - CHEST DISCOMFORT [None]
  - DIZZINESS [None]
  - DYSARTHRIA [None]
  - DYSPNOEA [None]
  - EMPTY SELLA SYNDROME [None]
  - FATIGUE [None]
  - LOSS OF CONSCIOUSNESS [None]
  - MYOSITIS [None]
  - ORTHOSTATIC HYPOTENSION [None]
  - PANIC DISORDER [None]
  - WEIGHT INCREASED [None]
